FAERS Safety Report 4536572-6 (Version None)
Quarter: 2004Q4

REPORT INFORMATION
  Report Type: 
  Country: None (occurrence: None)
  Receive Date: 20041223
  Receipt Date: 20041208
  Transmission Date: 20050328
  Serious: Yes (Hospitalization)
  Sender: FDA-Public Use
  Company Number: JP-ABBOTT-04P-087-0282681-00

PATIENT
  Age: 72 Year
  Sex: Female

DRUGS (9)
  1. VASOLAN [Suspect]
     Indication: HYPERTROPHIC CARDIOMYOPATHY
     Route: 048
     Dates: start: 19921108, end: 20041207
  2. VASOLAN [Suspect]
     Route: 048
     Dates: start: 20041207
  3. NICORANDIL [Suspect]
     Indication: ANGINA PECTORIS
     Route: 048
     Dates: start: 19971021
  4. FAMOTIDINE [Suspect]
     Indication: GASTRITIS
     Route: 048
     Dates: start: 20010101
  5. LEVOTHYROXINE SODIUM [Concomitant]
     Indication: HYPOTHYROIDISM
     Route: 048
     Dates: start: 19940101
  6. MAGNESIUM OXIDE [Concomitant]
     Indication: CONSTIPATION
     Route: 048
     Dates: start: 20010101
  7. MOSAPRIDE CITRATE [Concomitant]
     Indication: GASTRITIS
     Route: 048
     Dates: start: 20040716
  8. P MAGEN [Concomitant]
     Indication: GASTRITIS
     Route: 048
     Dates: start: 20040716
  9. CIBENZOLINE SUCCINATE [Concomitant]
     Indication: HYPERTROPHIC CARDIOMYOPATHY
     Route: 048
     Dates: start: 20041001, end: 20041115

REACTIONS (11)
  - ALANINE AMINOTRANSFERASE INCREASED [None]
  - ANGINA PECTORIS [None]
  - ANOREXIA [None]
  - ASPARTATE AMINOTRANSFERASE INCREASED [None]
  - GASTRITIS [None]
  - GASTROINTESTINAL DISORDER [None]
  - LIVER DISORDER [None]
  - MALAISE [None]
  - NAUSEA [None]
  - ORAL ADMINISTRATION COMPLICATION [None]
  - STOMACH DISCOMFORT [None]
